FAERS Safety Report 7784148-X (Version None)
Quarter: 2011Q3

REPORT INFORMATION
  Report Type: 
  Country: None (occurrence: None)
  Receive Date: 20110928
  Receipt Date: 20110921
  Transmission Date: 20111222
  Serious: Yes (Other)
  Sender: FDA-Public Use
  Company Number: US-B.I. PHARMACEUTICALS,INC./RIDGEFIELD-2011-BP-14952BP

PATIENT
  Sex: Female

DRUGS (6)
  1. MULTAQ [Suspect]
     Indication: ATRIAL FIBRILLATION
     Dosage: 800 MG
     Route: 048
     Dates: start: 20110301
  2. PROTONIX [Concomitant]
  3. PRADAXA [Suspect]
     Indication: ATRIAL FIBRILLATION
     Dosage: 300 MG
     Route: 048
     Dates: start: 20110301
  4. PHENOBARBITAL (PB) [Concomitant]
     Dosage: 150 MG
  5. FERROSOL [Concomitant]
  6. DIOVAN [Concomitant]
     Dosage: 60 MG

REACTIONS (5)
  - OEDEMA PERIPHERAL [None]
  - JOINT SWELLING [None]
  - BLOOD SODIUM DECREASED [None]
  - CONJUNCTIVAL HAEMORRHAGE [None]
  - FALL [None]
